FAERS Safety Report 4379746-X (Version None)
Quarter: 2004Q2

REPORT INFORMATION
  Report Type: 
  Country: None (occurrence: None)
  Receive Date: 20040617
  Receipt Date: 20040607
  Transmission Date: 20050107
  Serious: Yes (Other)
  Sender: FDA-Public Use
  Company Number: DK-GLAXOSMITHKLINE-B0335396A

PATIENT
  Sex: Female

DRUGS (1)
  1. PAROXETINE HCL [Suspect]
     Indication: ANXIETY
     Route: 065
     Dates: start: 19970201

REACTIONS (11)
  - CONSTIPATION [None]
  - DIARRHOEA [None]
  - DIZZINESS [None]
  - EATING DISORDER [None]
  - INSOMNIA [None]
  - LIBIDO DECREASED [None]
  - NAUSEA [None]
  - PARAESTHESIA [None]
  - SOCIAL PROBLEM [None]
  - SUICIDAL IDEATION [None]
  - TEARFULNESS [None]
